FAERS Safety Report 18267173 (Version 1)
Quarter: 2020Q3

REPORT INFORMATION
  Report Type: Report from Study
  Country: None (occurrence: PR)
  Receive Date: 20200915
  Receipt Date: 20200915
  Transmission Date: 20201103
  Serious: Yes (Hospitalization)
  Sender: FDA-Public Use
  Company Number: PR-ABBVIE-20K-131-3566402-00

PATIENT
  Sex: Male
  Weight: 60.84 kg

DRUGS (3)
  1. HUMIRA [Suspect]
     Active Substance: ADALIMUMAB
     Dosage: 40MG/0.4ML
     Route: 058
     Dates: start: 202009
  2. HUMIRA [Suspect]
     Active Substance: ADALIMUMAB
     Indication: CROHN^S DISEASE
     Route: 058
     Dates: end: 202005
  3. HUMIRA [Suspect]
     Active Substance: ADALIMUMAB
     Indication: CROHN^S DISEASE
     Route: 058
     Dates: start: 20161005

REACTIONS (2)
  - Fistula [Recovered/Resolved]
  - Gastrointestinal inflammation [Recovered/Resolved]

NARRATIVE: CASE EVENT DATE: 202008
